FAERS Safety Report 5080124-9 (Version None)
Quarter: 2006Q3

REPORT INFORMATION
  Report Type: 
  Country: None (occurrence: None)
  Receive Date: 20060815
  Receipt Date: 20060807
  Transmission Date: 20061208
  Serious: Yes (Other)
  Sender: FDA-Public Use
  Company Number: US-JNJFOC-20060802258

PATIENT
  Age: 83 Year
  Sex: Female

DRUGS (5)
  1. IMODIUM ADVANCED [Suspect]
     Route: 048
  2. IMODIUM ADVANCED [Suspect]
     Indication: DIARRHOEA
     Route: 048
  3. COUMADIN [Concomitant]
     Indication: DRUG USE FOR UNKNOWN INDICATION
  4. BLOOD PRESSURE MEDICATION [Concomitant]
     Indication: BLOOD PRESSURE ABNORMAL
  5. WATER PILLS [Concomitant]

REACTIONS (1)
  - FAECES DISCOLOURED [None]
